FAERS Safety Report 6935727-0 (Version None)
Quarter: 2010Q3

REPORT INFORMATION
  Report Type: 
  Country: None (occurrence: None)
  Receive Date: 20100823
  Receipt Date: 20100811
  Transmission Date: 20110219
  Serious: No
  Sender: FDA-Public Use
  Company Number: AU-US-EMD SERONO, INC.-7014505

PATIENT
  Sex: Female

DRUGS (1)
  1. REBIF [Suspect]
     Dates: start: 20091001

REACTIONS (1)
  - OPTIC NEURITIS [None]
